FAERS Safety Report 9361284 (Version 3)
Quarter: 2013Q4

REPORT INFORMATION
  Report Type: Report from Study
  Country: CA (occurrence: CA)
  Receive Date: 20130621
  Receipt Date: 20131122
  Transmission Date: 20140711
  Serious: Yes (Other)
  Sender: FDA-Public Use
  Company Number: CA-ROCHE-1162839

PATIENT
  Age: 52 Year
  Sex: Female

DRUGS (3)
  1. ZELBORAF [Suspect]
     Indication: METASTATIC MALIGNANT MELANOMA
     Route: 048
     Dates: start: 20121115, end: 20121128
  2. ZELBORAF [Suspect]
     Dosage: REDUCED DOSE
     Route: 048
     Dates: start: 201301
  3. ZELBORAF [Suspect]
     Route: 048
     Dates: start: 2013, end: 2013

REACTIONS (19)
  - Visual impairment [Unknown]
  - Diarrhoea [Not Recovered/Not Resolved]
  - Rash [Not Recovered/Not Resolved]
  - Urticaria [Not Recovered/Not Resolved]
  - Eye swelling [Not Recovered/Not Resolved]
  - Swelling face [Not Recovered/Not Resolved]
  - Headache [Unknown]
  - Vaginal infection [Not Recovered/Not Resolved]
  - Decreased appetite [Unknown]
  - Dizziness [Unknown]
  - Oropharyngeal pain [Not Recovered/Not Resolved]
  - Dysphagia [Not Recovered/Not Resolved]
  - Hyperaesthesia [Not Recovered/Not Resolved]
  - Dysgeusia [Unknown]
  - Heart rate increased [Unknown]
  - Abdominal discomfort [Not Recovered/Not Resolved]
  - Rash macular [Recovered/Resolved]
  - Swelling [Not Recovered/Not Resolved]
  - Local swelling [Not Recovered/Not Resolved]
